FAERS Safety Report 9206106 (Version 2)
Quarter: 2013Q4

REPORT INFORMATION
  Report Type: Spontaneous
  Country: US (occurrence: US)
  Receive Date: 20130403
  Receipt Date: 20131227
  Transmission Date: 20140711
  Serious: Yes (Hospitalization, Other)
  Sender: FDA-Public Use
  Company Number: US-BAYER-2013-040267

PATIENT
  Age: 21 Year
  Sex: Female

DRUGS (3)
  1. YAZ [Suspect]
     Dosage: UNK
     Dates: start: 2007
  2. EXJADE [Concomitant]
     Dosage: 2500 MG, DAILY
     Dates: start: 20110629
  3. FOLIC ACID [Concomitant]
     Dosage: 1 MG, DAILY

REACTIONS (2)
  - Cholecystectomy [None]
  - Cholecystitis acute [None]
